FAERS Safety Report 7941839-5 (Version None)
Quarter: 2011Q4

REPORT INFORMATION
  Report Type: 
  Country: None (occurrence: None)
  Receive Date: 20111122
  Receipt Date: 20111122
  Transmission Date: 20120403
  Serious: Yes (Death)
  Sender: FDA-Public Use
  Company Number: None

PATIENT
  Age: 75 Year
  Sex: Male

DRUGS (7)
  1. CLARITHROMYCIN [Concomitant]
  2. LORAZEPAM [Concomitant]
  3. WARFARIN SODIUM [Concomitant]
  4. ACYCLOVIR [Concomitant]
  5. VICODIN [Concomitant]
  6. REVLIMID [Suspect]
     Indication: MULTIPLE MYELOMA
     Dosage: 25MG DAILY ORALLY
     Route: 048
     Dates: start: 20110601, end: 20111101
  7. DEXAMETHASONE [Concomitant]

REACTIONS (3)
  - MULTIPLE MYELOMA [None]
  - NEOPLASM PROGRESSION [None]
  - THERAPEUTIC RESPONSE DECREASED [None]
